FAERS Safety Report 8190858-5 (Version None)
Quarter: 2012Q1

REPORT INFORMATION
  Report Type: 
  Country: None (occurrence: None)
  Receive Date: 20120307
  Receipt Date: 20120301
  Transmission Date: 20120608
  Serious: Yes (Life-Threatening, Hospitalization)
  Sender: FDA-Public Use
  Company Number: FR-MERCK-1203FRA00008

PATIENT
  Age: 60 Year
  Sex: Female
  Weight: 90 kg

DRUGS (9)
  1. DICLOFENAC SODIUM [Suspect]
     Route: 048
     Dates: end: 20120107
  2. VASERETIC [Suspect]
     Indication: HYPERTENSION
     Route: 048
     Dates: end: 20120107
  3. FUROSEMIDE [Suspect]
     Route: 048
     Dates: start: 20120102, end: 20120107
  4. LERCANIDIPINE [Suspect]
     Route: 048
     Dates: end: 20120107
  5. FUROSEMIDE [Suspect]
     Route: 048
     Dates: end: 20120101
  6. METFORMIN HYDROCHLORIDE [Suspect]
     Indication: TYPE 2 DIABETES MELLITUS
     Route: 048
     Dates: end: 20120107
  7. JANUVIA [Suspect]
     Indication: TYPE 2 DIABETES MELLITUS
     Route: 048
     Dates: end: 20120107
  8. VALSARTAN [Suspect]
     Route: 048
     Dates: end: 20120107
  9. POTASSIUM CHLORIDE [Suspect]
     Route: 048
     Dates: end: 20120107

REACTIONS (6)
  - COMA [None]
  - LACTIC ACIDOSIS [None]
  - HYPOGLYCAEMIA [None]
  - RENAL FAILURE ACUTE [None]
  - CARDIO-RESPIRATORY ARREST [None]
  - HYPERKALAEMIA [None]
